FAERS Safety Report 8471847-X (Version None)
Quarter: 2012Q2

REPORT INFORMATION
  Report Type: 
  Country: None (occurrence: None)
  Receive Date: 20120323
  Receipt Date: 20111003
  Transmission Date: 20120825
  Serious: Yes (Hospitalization)
  Sender: FDA-Public Use
  Company Number: 163-21880-11100270

PATIENT
  Age: 69 Year
  Sex: Male

DRUGS (1)
  1. REVLIMID [Suspect]
     Indication: PROSTATE CANCER
     Dosage: 5 MG, 1 IN 1 D, PO
     Route: 048
     Dates: start: 20081101

REACTIONS (1)
  - CHEST PAIN [None]
